FAERS Safety Report 9541369 (Version 1)
Quarter: 2013Q3

REPORT INFORMATION
  Report Type: Spontaneous
  Country: US (occurrence: None)
  Receive Date: 20130919
  Receipt Date: 20130919
  Transmission Date: 20140515
  Serious: Yes (Death, Hospitalization)
  Sender: FDA-Public Use
  Company Number: None

PATIENT
  Age: 66 Year
  Sex: Male
  Weight: 72.9 kg

DRUGS (2)
  1. CYTARABINE [Suspect]
     Indication: ACUTE MYELOID LEUKAEMIA
     Dosage: 40 MG OTHER
     Dates: start: 20130814, end: 20130820
  2. CLOFARABINE [Suspect]
     Indication: ACUTE MYELOID LEUKAEMIA
     Dosage: 57 MG OTHER IV
     Route: 042
     Dates: start: 20130814, end: 20130820

REACTIONS (6)
  - Fanconi syndrome [None]
  - Renal failure acute [None]
  - Liver function test abnormal [None]
  - Metabolic acidosis [None]
  - Hypokalaemia [None]
  - Hyperphosphataemia [None]
